FAERS Safety Report 5903935-3 (Version None)
Quarter: 2008Q3

REPORT INFORMATION
  Report Type: 
  Country: None (occurrence: None)
  Receive Date: 20080930
  Receipt Date: 20080917
  Transmission Date: 20090109
  Serious: Yes (Hospitalization)
  Sender: FDA-Public Use
  Company Number: US-ELI_LILLY_AND_COMPANY-US200808006044

PATIENT
  Sex: Female

DRUGS (24)
  1. CYMBALTA [Suspect]
     Dosage: 60 MG, 2/D
  2. CARISOPRODOL [Concomitant]
     Dosage: 350 MG, UNK
  3. SINGULAIR [Concomitant]
     Dosage: 10 MG, UNK
  4. LOTEMAX [Concomitant]
  5. CLONAZEPAM [Concomitant]
     Dosage: 0.5 MG, 3/D
  6. ACULAR [Concomitant]
  7. DOXYCYCLINE HYCLATE [Concomitant]
     Dosage: 100 MG, UNK
  8. BUTALBITAL/CAFFEINE/PARACETAMOL/ [Concomitant]
  9. PREMARIN [Concomitant]
     Dosage: 0.625 MG, UNK
  10. BETAMETHASONE DIPROPIONATE W/CLOTRIMAZOLE [Concomitant]
  11. LYRICA [Concomitant]
     Dosage: 50 MG, UNK
  12. EFFEXOR XR [Concomitant]
     Dosage: 75 MG, UNK
  13. FLUOROMETHOLONE [Concomitant]
  14. ZYVOX [Concomitant]
     Dosage: 600 MG, UNK
  15. METHYLPREDNISOLONE [Concomitant]
     Dosage: 4 MG, UNK
  16. PREMARIN [Concomitant]
  17. SUCRALFATE [Concomitant]
     Dosage: 1 G, UNK
  18. OXYBUTON [Concomitant]
     Dosage: 15 MG, UNK
  19. PROPOXYPHENE NAPSYLATE W/PARACETAMOL [Concomitant]
  20. NEXIUM [Concomitant]
     Dosage: 40 MG, UNK
  21. ADVAIR DISKUS 100/50 [Concomitant]
  22. SULFAMETHOXAZOLE + TRIMETHOPRIM [Concomitant]
  23. NYSTOP [Concomitant]
  24. NYSTATIN [Concomitant]
     Dosage: 30 G, UNK

REACTIONS (2)
  - DIZZINESS [None]
  - URINARY TRACT INFECTION [None]
